FAERS Safety Report 9431929 (Version 4)
Quarter: 2014Q1

REPORT INFORMATION
  Report Type: Spontaneous
  Country: GB (occurrence: GB)
  Receive Date: 20130731
  Receipt Date: 20140107
  Transmission Date: 20141002
  Serious: Yes (Other)
  Sender: FDA-Public Use
  Company Number: PHFR2013GB004331

PATIENT
  Age: 34 Year
  Sex: Male

DRUGS (3)
  1. CLOZARIL [Suspect]
     Indication: SCHIZOPHRENIA, PARANOID TYPE
     Dosage: UNK UKN, UNK
     Route: 048
     Dates: start: 20130726
  2. CLOZARIL [Suspect]
     Dosage: 125 MG, QD
     Route: 048
     Dates: start: 20130730, end: 20130801
  3. ZOPICLONE [Concomitant]
     Indication: INSOMNIA
     Dosage: 15 MG, QD
     Route: 048

REACTIONS (4)
  - Cardiac disorder [Recovered/Resolved]
  - Paranoia [Not Recovered/Not Resolved]
  - Dysstasia [Recovered/Resolved]
  - Asthenia [Recovered/Resolved]
